FAERS Safety Report 4739296-5 (Version None)
Quarter: 2005Q3

REPORT INFORMATION
  Report Type: 
  Country: None (occurrence: None)
  Receive Date: 20050810
  Receipt Date: 20041129
  Transmission Date: 20060218
  Serious: No
  Sender: FDA-Public Use
  Company Number: US-GLAXOSMITHKLINE-A0540302A

PATIENT
  Sex: Female

DRUGS (3)
  1. PAXIL [Suspect]
     Indication: DEPRESSION
     Route: 048
  2. PAXIL [Concomitant]
     Route: 048
  3. INSULIN [Concomitant]

REACTIONS (4)
  - DRUG INEFFECTIVE [None]
  - DYSARTHRIA [None]
  - DYSPHASIA [None]
  - SOMNOLENCE [None]
